FAERS Safety Report 13663339 (Version 1)
Quarter: 2017Q2

REPORT INFORMATION
  Report Type: Spontaneous
  Country: US (occurrence: US)
  Receive Date: 20170617
  Receipt Date: 20170617
  Transmission Date: 20170830
  Serious: Yes (Other)
  Sender: FDA-Public Use
  Company Number: None

PATIENT
  Age: 73 Year
  Sex: Female
  Weight: 142.6 kg

DRUGS (15)
  1. VIBERZI [Suspect]
     Active Substance: ELUXADOLINE
     Indication: ABDOMINAL PAIN
     Dosage: ?          QUANTITY:1 TABLET(S);?
     Route: 048
     Dates: start: 20170616, end: 20170616
  2. VIBERZI [Suspect]
     Active Substance: ELUXADOLINE
     Indication: DIARRHOEA
     Dosage: ?          QUANTITY:1 TABLET(S);?
     Route: 048
     Dates: start: 20170616, end: 20170616
  3. LISINOPRIL/HCTZ [Concomitant]
     Active Substance: HYDROCHLOROTHIAZIDE\LISINOPRIL
  4. AMARYLE [Concomitant]
  5. ATORVASTATIN [Concomitant]
     Active Substance: ATORVASTATIN
  6. VITAMIN B-COMPLEX [Concomitant]
     Active Substance: DEXPANTHENOL\NIACINAMIDE\PYRIDOXINE HYDROCHLORIDE\RIBOFLAVIN 5^-PHOSPHATE SODIUM\THIAMINE HYDROCHLORIDE
  7. INSUIIN [Concomitant]
  8. ZESTORTIC [Concomitant]
  9. HUMALOG [Concomitant]
     Active Substance: INSULIN LISPRO
  10. GLIMEPIRIDE. [Concomitant]
     Active Substance: GLIMEPIRIDE
  11. VITAMIN C [Concomitant]
     Active Substance: ASCORBIC ACID
  12. VITAMIN D [Concomitant]
     Active Substance: CHOLECALCIFEROL
  13. GLUCOPHAGE [Concomitant]
     Active Substance: METFORMIN HYDROCHLORIDE
  14. LIPITOR [Concomitant]
     Active Substance: ATORVASTATIN CALCIUM
  15. TRICOR [Concomitant]
     Active Substance: FENOFIBRATE

REACTIONS (1)
  - Blood urine present [None]

NARRATIVE: CASE EVENT DATE: 20170616
